FAERS Safety Report 4721496-1 (Version None)
Quarter: 2005Q3

REPORT INFORMATION
  Report Type: 
  Country: None (occurrence: None)
  Receive Date: 20050721
  Receipt Date: 20041019
  Transmission Date: 20060218
  Serious: Yes (Other)
  Sender: FDA-Public Use
  Company Number: US-BRISTOL-MYERS SQUIBB COMPANY-12736179

PATIENT
  Age: 53 Year
  Sex: Female
  Weight: 90 kg

DRUGS (10)
  1. COUMADIN [Suspect]
     Indication: COAGULOPATHY
  2. NATRECOR [Suspect]
     Dosage: BOLUS DOSE OF 2 UG/KG INTRAVENOUSLY, THEN 0.01 UG/KG/MIN
     Route: 051
  3. TRICOR [Concomitant]
  4. LASIX [Concomitant]
  5. SPIRONOLACTONE [Concomitant]
  6. ULTRACET [Concomitant]
  7. K-DUR 10 [Concomitant]
  8. DIGITEK [Concomitant]
  9. STARLIX [Concomitant]
  10. ESTROGEN PATCH [Concomitant]

REACTIONS (12)
  - BLOOD CREATININE INCREASED [None]
  - BLOOD POTASSIUM DECREASED [None]
  - BLOOD UREA INCREASED [None]
  - CONSTIPATION [None]
  - COUGH [None]
  - DYSPNOEA [None]
  - INTERNATIONAL NORMALISED RATIO INCREASED [None]
  - LIP PAIN [None]
  - MUSCLE SPASMS [None]
  - OEDEMA PERIPHERAL [None]
  - RASH PRURITIC [None]
  - WEIGHT INCREASED [None]
